FAERS Safety Report 24729673 (Version 1)
Quarter: 2024Q4

REPORT INFORMATION
  Report Type: Spontaneous
  Country: GB (occurrence: GB)
  Receive Date: 20241213
  Receipt Date: 20241213
  Transmission Date: 20250115
  Serious: Yes (Other)
  Sender: TEVA
  Company Number: GB-BAXTER-2024BAX024863

PATIENT
  Age: 58 Year
  Sex: Female

DRUGS (7)
  1. EPIRUBICIN [Suspect]
     Active Substance: EPIRUBICIN
     Indication: Breast cancer female
     Route: 065
  2. EPIRUBICIN [Suspect]
     Active Substance: EPIRUBICIN
     Indication: Breast cancer female
     Dosage: DAILY DOSE: 60MG
     Route: 042
     Dates: start: 20240815, end: 20240815
  3. EPIRUBICIN [Suspect]
     Active Substance: EPIRUBICIN
     Indication: Breast cancer female
     Route: 065
  4. PROMETHAZINE [Concomitant]
     Active Substance: PROMETHAZINE HYDROCHLORIDE
     Indication: Mental disorder
     Dosage: 25 MG-50 MG ON
  5. APREPITANT [Concomitant]
     Active Substance: APREPITANT
     Indication: Antiemetic supportive care
     Dosage: DURATION: 1 DAYS
     Route: 048
     Dates: start: 20240815, end: 20240815
  6. DEXAMETHASONE [Concomitant]
     Active Substance: DEXAMETHASONE
     Indication: Antiemetic supportive care
     Dosage: DURATION: 1 DAYS
     Route: 048
     Dates: start: 20240815, end: 20240815
  7. ONDANSETRON [Concomitant]
     Active Substance: ONDANSETRON
     Indication: Antiemetic supportive care
     Dosage: DURATION: 1 DAYS
     Route: 048
     Dates: start: 20240815, end: 20240815

REACTIONS (4)
  - Hypoaesthesia oral [Recovered/Resolved]
  - Paraesthesia oral [Recovered/Resolved]
  - Hypersensitivity [Unknown]
  - Palpitations [Recovered/Resolved]
